FAERS Safety Report 6983870-2 (Version None)
Quarter: 2010Q3

REPORT INFORMATION
  Report Type: 
  Country: None (occurrence: None)
  Receive Date: 20100914
  Receipt Date: 20090526
  Transmission Date: 20110219
  Serious: Yes (Other)
  Sender: FDA-Public Use
  Company Number: US-WYE-H08635509

PATIENT
  Sex: Female
  Weight: 63.56 kg

DRUGS (1)
  1. TYGACIL [Suspect]
     Indication: ABSCESS
     Dosage: UNKNOWN
     Route: 042
     Dates: start: 20090301

REACTIONS (3)
  - DIARRHOEA [None]
  - HEPATIC ENZYME INCREASED [None]
  - HYPERTENSION [None]
